FAERS Safety Report 9696228 (Version 4)
Quarter: 2014Q1

REPORT INFORMATION
  Report Type: Report from Study
  Country: CA (occurrence: CA)
  Receive Date: 20131119
  Receipt Date: 20140110
  Transmission Date: 20141002
  Serious: Yes (Death, Hospitalization, Other)
  Sender: FDA-Public Use
  Company Number: CA-INCYTE CORPORATION-2013IN002650

PATIENT
  Age: 81 Year
  Sex: Male

DRUGS (2)
  1. JAKAVI [Suspect]
     Indication: MYELOFIBROSIS
     Dosage: 5 MG, BID
     Route: 048
     Dates: start: 20131030, end: 20131203
  2. JAKAVI [Suspect]
     Dosage: UNK
     Dates: end: 20131211

REACTIONS (10)
  - Death [Fatal]
  - Gastrointestinal haemorrhage [Unknown]
  - Decreased appetite [Unknown]
  - Full blood count decreased [Unknown]
  - Platelet count decreased [Unknown]
  - General physical health deterioration [Unknown]
  - Gout [Recovering/Resolving]
  - Asthenia [Unknown]
  - Pain in extremity [Unknown]
  - Oedema peripheral [Unknown]
